FAERS Safety Report 19004223 (Version 4)
Quarter: 2021Q2

REPORT INFORMATION
  Report Type: Spontaneous
  Country: SE (occurrence: SE)
  Receive Date: 20210313
  Receipt Date: 20210417
  Transmission Date: 20210717
  Serious: Yes (Life-Threatening, Hospitalization, Other)
  Sender: FDA-Public Use
  Company Number: SE-ABBVIE-21K-150-3813989-00

PATIENT
  Age: 60 Year
  Sex: Male
  Weight: 76 kg

DRUGS (1)
  1. VENETOCLAX. [Suspect]
     Active Substance: VENETOCLAX
     Indication: CHRONIC LYMPHOCYTIC LEUKAEMIA
     Route: 048
     Dates: start: 20210205, end: 20210309

REACTIONS (5)
  - Drug ineffective [Unknown]
  - Chronic lymphocytic leukaemia [Not Recovered/Not Resolved]
  - Endotracheal intubation [Recovered/Resolved with Sequelae]
  - Postoperative wound complication [Unknown]
  - Obstructive airways disorder [Not Recovered/Not Resolved]

NARRATIVE: CASE EVENT DATE: 2021
